FAERS Safety Report 4531720-6 (Version None)
Quarter: 2004Q4

REPORT INFORMATION
  Report Type: 
  Country: None (occurrence: None)
  Receive Date: 20041216
  Receipt Date: 20041130
  Transmission Date: 20050328
  Serious: Yes (Other)
  Sender: FDA-Public Use
  Company Number: DSA_25462_2004

PATIENT
  Age: 69 Year
  Sex: Male
  Weight: 73.9363 kg

DRUGS (5)
  1. CARDIZEM [Suspect]
     Indication: ARTERIOSPASM CORONARY
     Dosage: 60 MG TID PO
     Route: 048
     Dates: start: 19970101, end: 19990101
  2. CARDIZEM [Suspect]
     Dates: start: 19700101
  3. CARDIZEM CD [Suspect]
     Dosage: 240 MG Q DAY
     Dates: start: 19990101
  4. ASPIRIN [Concomitant]
  5. PRAVACHOL [Concomitant]

REACTIONS (3)
  - GAIT DISTURBANCE [None]
  - HERPES ZOSTER OTICUS [None]
  - LOSS OF CONTROL OF LEGS [None]
